FAERS Safety Report 6300641-0 (Version None)
Quarter: 2009Q3

REPORT INFORMATION
  Report Type: 
  Country: None (occurrence: None)
  Receive Date: 20090806
  Receipt Date: 20090723
  Transmission Date: 20100115
  Serious: Yes (Other)
  Sender: FDA-Public Use
  Company Number: GB-BAUSCH-2009BL003691

PATIENT
  Age: 14 Year
  Sex: Female

DRUGS (4)
  1. PREDNISOLONE [Suspect]
     Indication: HEART TRANSPLANT
  2. AZATHIOPRINE [Suspect]
     Indication: HEART TRANSPLANT
  3. TACROLIMUS [Suspect]
     Indication: HEART TRANSPLANT
  4. CYCLOSPORINE [Suspect]
     Indication: DRUG USE FOR UNKNOWN INDICATION

REACTIONS (5)
  - ACUTE LYMPHOCYTIC LEUKAEMIA [None]
  - BURKITT'S LYMPHOMA STAGE III [None]
  - EPSTEIN-BARR VIRUS ASSOCIATED LYMPHOPROLIFERATIVE DISORDER [None]
  - EPSTEIN-BARR VIRUS INFECTION [None]
  - LYMPHADENOPATHY [None]
